FAERS Safety Report 6146241-7 (Version None)
Quarter: 2009Q2

REPORT INFORMATION
  Report Type: 
  Country: None (occurrence: None)
  Receive Date: 20090406
  Receipt Date: 20090406
  Transmission Date: 20091009
  Serious: Yes (Life-Threatening, Hospitalization)
  Sender: FDA-Public Use
  Company Number: None

PATIENT
  Age: 51 Year
  Sex: Male
  Weight: 90.3 kg

DRUGS (1)
  1. ADALIMUMAB [Suspect]
     Indication: PSORIASIS
     Dosage: 40 MG OTHER SQ
     Route: 058
     Dates: start: 20081107, end: 20090220

REACTIONS (7)
  - CARDIAC TAMPONADE [None]
  - LUPUS-LIKE SYNDROME [None]
  - PERICARDIAL EFFUSION [None]
  - PERICARDITIS [None]
  - PLEURAL EFFUSION [None]
  - PLEURISY [None]
  - PLEURITIC PAIN [None]
